FAERS Safety Report 4514193-9 (Version None)
Quarter: 2004Q4

REPORT INFORMATION
  Report Type: 
  Country: None (occurrence: None)
  Receive Date: 20041124
  Receipt Date: 20041111
  Transmission Date: 20050328
  Serious: No
  Sender: FDA-Public Use
  Company Number: 2004UW23253

PATIENT
  Sex: Female

DRUGS (2)
  1. CRESTOR [Suspect]
  2. LIPITOR [Suspect]

REACTIONS (6)
  - DIFFICULTY IN WALKING [None]
  - HYPERAESTHESIA [None]
  - PAIN [None]
  - PAIN IN EXTREMITY [None]
  - SLEEP DISORDER [None]
  - TINNITUS [None]
